FAERS Safety Report 18932746 (Version 1)
Quarter: 2021Q1

REPORT INFORMATION
  Report Type: Spontaneous
  Country: US (occurrence: US)
  Receive Date: 20210223
  Receipt Date: 20210223
  Transmission Date: 20210420
  Serious: No
  Sender: FDA-Public Use
  Company Number: None

PATIENT
  Age: 28 Year
  Sex: Male
  Weight: 90 kg

DRUGS (4)
  1. NATURE^S BOUNTY B?12 VITAMIN [Concomitant]
  2. MULTI VITAMIN [Concomitant]
     Active Substance: VITAMINS
  3. ROMPE PECHO MAX MULTI SYMPTOMS [Suspect]
     Active Substance: ACETAMINOPHEN\DEXTROMETHORPHAN HYDROBROMIDE\GUAIFENESIN\PHENYLEPHRINE HYDROCHLORIDE
     Indication: COUGH
     Dosage: ?          QUANTITY:1 TABLESPOON(S);?
     Route: 048
     Dates: start: 20210223, end: 20210223
  4. NATURE MADE MINI OMEGA?3 VITAMIN [Concomitant]

REACTIONS (5)
  - Dizziness [None]
  - Hallucination [None]
  - Abdominal pain upper [None]
  - Fall [None]
  - Sudden onset of sleep [None]

NARRATIVE: CASE EVENT DATE: 20210223
